FAERS Safety Report 18126086 (Version 2)
Quarter: 2020Q4

REPORT INFORMATION
  Report Type: Spontaneous
  Country: ES (occurrence: ES)
  Receive Date: 20200808
  Receipt Date: 20201012
  Transmission Date: 20210113
  Serious: Yes (Other)
  Sender: FDA-Public Use
  Company Number: ES-AMGEN-ESPSP2020125926

PATIENT
  Age: 59 Year
  Sex: Female
  Weight: 63 kg

DRUGS (1)
  1. PROLIA [Suspect]
     Active Substance: DENOSUMAB
     Indication: MENOPAUSE
     Dosage: UNK
     Route: 030
     Dates: start: 20140301, end: 201906

REACTIONS (1)
  - Spinal fracture [Not Recovered/Not Resolved]

NARRATIVE: CASE EVENT DATE: 20190605
